FAERS Safety Report 25643740 (Version 2)
Quarter: 2025Q3

REPORT INFORMATION
  Report Type: Spontaneous
  Country: US (occurrence: US)
  Receive Date: 20250805
  Receipt Date: 20250926
  Transmission Date: 20251021
  Serious: Yes (Other)
  Sender: ROCHE
  Company Number: US-ROCHE-10000353622

PATIENT

DRUGS (3)
  1. INAVOLISIB [Suspect]
     Active Substance: INAVOLISIB
     Indication: Breast cancer metastatic
     Route: 065
  2. INAVOLISIB [Suspect]
     Active Substance: INAVOLISIB
     Indication: HER2 positive breast cancer
     Route: 065
  3. METFORMIN [Concomitant]
     Active Substance: METFORMIN HYDROCHLORIDE

REACTIONS (3)
  - Hyperglycaemia [Unknown]
  - Off label use [Unknown]
  - Osteomyelitis [Unknown]
